FAERS Safety Report 8419971-1 (Version None)
Quarter: 2012Q2

REPORT INFORMATION
  Report Type: 
  Country: None (occurrence: None)
  Receive Date: 20120607
  Receipt Date: 20120601
  Transmission Date: 20120825
  Serious: Yes (Other)
  Sender: FDA-Public Use
  Company Number: AU-ROCHE-715360

PATIENT
  Sex: Female

DRUGS (3)
  1. PEGASYS [Suspect]
     Indication: HEPATITIS VIRAL
     Route: 058
     Dates: start: 20090901, end: 20100714
  2. ENTECAVIR [Suspect]
     Indication: HEPATITIS B
     Route: 048
     Dates: start: 20100301, end: 20100714
  3. ESOMEPRAZOLE [Suspect]
     Indication: PRODUCT USED FOR UNKNOWN INDICATION
     Route: 048

REACTIONS (3)
  - NO ADVERSE EVENT [None]
  - PREGNANCY [None]
  - ABORTION SPONTANEOUS [None]
